FAERS Safety Report 8107807-8 (Version None)
Quarter: 2012Q1

REPORT INFORMATION
  Report Type: 
  Country: None (occurrence: None)
  Receive Date: 20120202
  Receipt Date: 20120123
  Transmission Date: 20120608
  Serious: Yes (Hospitalization)
  Sender: FDA-Public Use
  Company Number: DE-ABBOTT-12P-062-0895896-01

PATIENT
  Sex: Female

DRUGS (8)
  1. COMMERCIAL HUMIRA (ADALIMUMAB) [Concomitant]
     Indication: CROHN'S DISEASE
     Route: 058
     Dates: start: 20090130
  2. 5-ASA/MESALAMINE [Concomitant]
     Indication: PRODUCT USED FOR UNKNOWN INDICATION
  3. HUMIRA [Suspect]
     Dosage: (WEEK 2)
     Route: 058
  4. HUMIRA [Suspect]
     Route: 058
     Dates: end: 20091117
  5. HUMIRA [Suspect]
     Indication: CROHN'S DISEASE
     Dosage: (BASELINE)
     Route: 058
  6. METHOTREXATE [Concomitant]
     Indication: CROHN'S DISEASE
     Dates: start: 20090804
  7. REMICADE [Concomitant]
     Indication: PRODUCT USED FOR UNKNOWN INDICATION
  8. PANTOPRAZOLE SODIUM SESQUIHYDRATE [Concomitant]
     Indication: GASTRITIS EROSIVE

REACTIONS (1)
  - ILEAL STENOSIS [None]
